FAERS Safety Report 19443813 (Version 1)
Quarter: 2021Q2

REPORT INFORMATION
  Report Type: Spontaneous
  Country: FR (occurrence: FR)
  Receive Date: 20210621
  Receipt Date: 20210621
  Transmission Date: 20210717
  Serious: Yes (Other)
  Sender: FDA-Public Use
  Company Number: NVSC2021FR134188

PATIENT
  Age: 41 Year
  Sex: Female

DRUGS (6)
  1. QUETIAPINE. [Suspect]
     Active Substance: QUETIAPINE
     Indication: MENTAL DISORDER
     Dosage: 200 MG, QD
     Route: 048
     Dates: start: 20201204, end: 20210308
  2. ALPRAZOLAM. [Concomitant]
     Active Substance: ALPRAZOLAM
     Indication: MENTAL DISORDER
     Dosage: 1 MG, QD
     Route: 048
     Dates: start: 20200310
  3. SERTRALINE HYDROCHLORIDE. [Suspect]
     Active Substance: SERTRALINE HYDROCHLORIDE
     Indication: MENTAL DISORDER
     Dosage: 100 MG, QD
     Route: 048
     Dates: start: 20191108
  4. RISPERIDONE. [Suspect]
     Active Substance: RISPERIDONE
     Indication: MENTAL DISORDER
     Dosage: UNK (INCONNUE)
     Route: 048
     Dates: start: 20190701, end: 20210423
  5. VALPROATE SODIUM. [Suspect]
     Active Substance: VALPROATE SODIUM
     Indication: MENTAL DISORDER
     Dosage: 1000 MG,QD
     Route: 048
     Dates: start: 20210308, end: 20210413
  6. LORMETAZEPAM [Concomitant]
     Active Substance: LORMETAZEPAM
     Indication: MENTAL DISORDER
     Dosage: 2 MG, QD
     Route: 048
     Dates: start: 20191112

REACTIONS (4)
  - Akathisia [Not Recovered/Not Resolved]
  - Tardive dyskinesia [Recovering/Resolving]
  - Tremor [Recovered/Resolved]
  - Dystonia [Recovered/Resolved]

NARRATIVE: CASE EVENT DATE: 20201216
